FAERS Safety Report 5144740-8 (Version None)
Quarter: 2006Q4

REPORT INFORMATION
  Report Type: 
  Country: None (occurrence: None)
  Receive Date: 20061107
  Receipt Date: 20061026
  Transmission Date: 20070319
  Serious: Yes (Death, Hospitalization)
  Sender: FDA-Public Use
  Company Number: US-JNJFOC-20061100378

PATIENT
  Age: 70 Year
  Sex: Female

DRUGS (2)
  1. REOPRO [Suspect]
     Indication: MYOCARDIAL INFARCTION
     Route: 042
  2. HEPARIN [Concomitant]
     Indication: PERIPHERAL VASCULAR DISORDER

REACTIONS (2)
  - ARTERY DISSECTION [None]
  - DEATH [None]
